FAERS Safety Report 4695996-7 (Version None)
Quarter: 2005Q2

REPORT INFORMATION
  Report Type: 
  Country: None (occurrence: None)
  Receive Date: 20050621
  Receipt Date: 20050613
  Transmission Date: 20051028
  Serious: Yes (Other)
  Sender: FDA-Public Use
  Company Number: CA-GLAXOSMITHKLINE-A0562519A

PATIENT
  Sex: Male

DRUGS (2)
  1. AVANDIA [Suspect]
     Indication: DRUG USE FOR UNKNOWN INDICATION
     Dosage: 4MG TWICE PER DAY
     Route: 048
     Dates: start: 20010101
  2. LOPRESSOR [Suspect]
     Dosage: 75MG PER DAY
     Route: 065
     Dates: start: 20040101

REACTIONS (2)
  - INFARCTION [None]
  - WEIGHT INCREASED [None]
